FAERS Safety Report 22624989 (Version 1)
Quarter: 2023Q2

REPORT INFORMATION
  Report Type: Spontaneous
  Country: NP (occurrence: NP)
  Receive Date: 20230621
  Receipt Date: 20230621
  Transmission Date: 20230721
  Serious: Yes (Hospitalization)
  Sender: FDA-Public Use
  Company Number: NP-PFIZER INC-PV202300107355

PATIENT
  Age: 42 Year
  Sex: Female

DRUGS (1)
  1. TORISEL [Suspect]
     Active Substance: TEMSIROLIMUS
     Indication: Renal cell carcinoma
     Dosage: 25MG (1 X 25MG VIAL)

REACTIONS (1)
  - Peripheral swelling [Unknown]
